FAERS Safety Report 18365310 (Version 1)
Quarter: 2020Q4

REPORT INFORMATION
  Report Type: Spontaneous
  Country: US (occurrence: US)
  Receive Date: 20201009
  Receipt Date: 20201009
  Transmission Date: 20210114
  Serious: No
  Sender: FDA-Public Use
  Company Number: US-MYLANLABS-2020M1084094

PATIENT
  Sex: Male

DRUGS (5)
  1. PREDNISONE. [Suspect]
     Active Substance: PREDNISONE
     Indication: PRODUCT USED FOR UNKNOWN INDICATION
     Dosage: UNK
  2. ATENOLOL ZYDUS [Suspect]
     Active Substance: ATENOLOL
     Indication: PROCTALGIA
     Dosage: UNK
  3. ATENOLOL ZYDUS [Suspect]
     Active Substance: ATENOLOL
     Indication: CARDIAC DISORDER
  4. METOPROLOL. [Suspect]
     Active Substance: METOPROLOL
     Indication: PRODUCT USED FOR UNKNOWN INDICATION
     Dosage: UNK
  5. ATENOLOL ZYDUS [Suspect]
     Active Substance: ATENOLOL
     Indication: PERIPHERAL VASCULAR DISORDER

REACTIONS (2)
  - Discomfort [Unknown]
  - Pain [Unknown]
